FAERS Safety Report 17822207 (Version 1)
Quarter: 2020Q2

REPORT INFORMATION
  Report Type: Spontaneous
  Country: JP (occurrence: JP)
  Receive Date: 20200526
  Receipt Date: 20200526
  Transmission Date: 20200714
  Serious: Yes (Other)
  Sender: FDA-Public Use
  Company Number: JP-SUN PHARMACEUTICAL INDUSTRIES LTD-2020RR-248135

PATIENT
  Age: 33 Year
  Sex: Female

DRUGS (8)
  1. HYDROCHLOROTHIAZIDE. [Suspect]
     Active Substance: HYDROCHLOROTHIAZIDE
     Indication: PRODUCT USED FOR UNKNOWN INDICATION
     Dosage: UNK
     Route: 065
  2. ACETYLSALICYLIC ACID [Suspect]
     Active Substance: ASPIRIN
     Indication: PRODUCT USED FOR UNKNOWN INDICATION
     Dosage: UNK
     Route: 065
  3. PILSICAINIDE HYDROCHLORIDE [Suspect]
     Active Substance: PILSICAINIDE HYDROCHLORIDE
     Indication: PRODUCT USED FOR UNKNOWN INDICATION
     Dosage: UNK
     Route: 065
  4. FUROSEMIDE. [Suspect]
     Active Substance: FUROSEMIDE
     Indication: PRODUCT USED FOR UNKNOWN INDICATION
     Dosage: UNK
     Route: 065
  5. SPIRONOLACTONE. [Suspect]
     Active Substance: SPIRONOLACTONE
     Indication: PRODUCT USED FOR UNKNOWN INDICATION
     Dosage: UNK
     Route: 065
  6. WARFARIN [Suspect]
     Active Substance: WARFARIN
     Indication: PRODUCT USED FOR UNKNOWN INDICATION
     Dosage: 4 MILLIGRAM, DAILY
     Route: 065
  7. DIGOXIN. [Suspect]
     Active Substance: DIGOXIN
     Indication: PRODUCT USED FOR UNKNOWN INDICATION
     Dosage: UNK
     Route: 065
  8. DANAPAROID SODIUM [Suspect]
     Active Substance: DANAPAROID SODIUM
     Indication: PRODUCT USED FOR UNKNOWN INDICATION
     Dosage: 1250 U, DAILY
     Route: 065

REACTIONS (6)
  - Subchorionic haemorrhage [Unknown]
  - Postpartum haemorrhage [Unknown]
  - Exposure during pregnancy [Unknown]
  - Haemorrhagic disorder [Unknown]
  - Subchorionic haematoma [Unknown]
  - Premature delivery [Unknown]
